FAERS Safety Report 21550598 (Version 1)
Quarter: 2022Q4

REPORT INFORMATION
  Report Type: Spontaneous
  Country: US (occurrence: US)
  Receive Date: 20221103
  Receipt Date: 20221103
  Transmission Date: 20230113
  Serious: No
  Sender: FDA-Public Use
  Company Number: US-MYOVANT SCIENCES GMBH-2022MYSCI1000032

PATIENT
  Sex: Male

DRUGS (5)
  1. ORGOVYX [Suspect]
     Active Substance: RELUGOLIX
     Indication: Prostate cancer
     Dosage: UNK
     Route: 065
  2. HYDROCHLOROTHIAZIDE [Concomitant]
     Active Substance: HYDROCHLOROTHIAZIDE
     Indication: Blood pressure abnormal
     Dosage: 12.5 MG - 25 MG
     Route: 065
  3. FLOMAX                             /01280302/ [Concomitant]
     Indication: Prostatomegaly
     Dosage: 0.4 MILLIGRAM
     Route: 065
  4. MULTIVITAMIN                       /00097801/ [Concomitant]
     Indication: Supplementation therapy
     Dosage: UNK
     Route: 065
  5. CALCIUM CITRATE [Concomitant]
     Active Substance: CALCIUM CITRATE
     Indication: Bone disorder
     Dosage: UNK
     Route: 065

REACTIONS (2)
  - Bradyphrenia [Unknown]
  - Confusional state [None]
